FAERS Safety Report 5369386-8 (Version None)
Quarter: 2007Q2

REPORT INFORMATION
  Report Type: 
  Country: None (occurrence: None)
  Receive Date: 20070625
  Receipt Date: 20070411
  Transmission Date: 20071010
  Serious: No
  Sender: FDA-Public Use
  Company Number: US-ASTRAZENECA-2007UW07088

PATIENT
  Age: 55 Year
  Sex: Male
  Weight: 79.4 kg

DRUGS (6)
  1. CRESTOR [Suspect]
     Route: 048
     Dates: start: 20070226, end: 20070324
  2. CRESTOR [Suspect]
     Route: 048
     Dates: start: 20070330, end: 20070402
  3. METFORMIN HCL [Concomitant]
     Indication: DIABETES MELLITUS
  4. GLYBURIDE [Concomitant]
  5. LISINOPRIL [Concomitant]
     Route: 048
  6. ASPIRIN [Concomitant]

REACTIONS (3)
  - BACK PAIN [None]
  - INFLAMMATION [None]
  - PAIN IN EXTREMITY [None]
